FAERS Safety Report 5091315-5 (Version None)
Quarter: 2006Q3

REPORT INFORMATION
  Report Type: 
  Country: None (occurrence: None)
  Receive Date: 20060829
  Receipt Date: 20060807
  Transmission Date: 20061208
  Serious: Yes (Hospitalization, Other)
  Sender: FDA-Public Use
  Company Number: PHRM2006FR02302

PATIENT
  Age: 63 Year
  Sex: Female
  Weight: 85 kg

DRUGS (7)
  1. LAMISIL [Suspect]
     Route: 048
     Dates: start: 20000422, end: 20020402
  2. ALDACTONE [Concomitant]
  3. RANIPLEX [Concomitant]
  4. ATACAND [Concomitant]
     Dates: end: 20011201
  5. ZANIDIP [Concomitant]
  6. APROVEL [Concomitant]
  7. LAMISIL [Concomitant]
     Dates: start: 20041025

REACTIONS (4)
  - BURNING SENSATION [None]
  - LYMPHOMA [None]
  - PAIN IN EXTREMITY [None]
  - PERIPHERAL SENSORIMOTOR NEUROPATHY [None]
